FAERS Safety Report 14950523 (Version 3)
Quarter: 2018Q2

REPORT INFORMATION
  Report Type: Spontaneous
  Country: US (occurrence: US)
  Receive Date: 20180530
  Receipt Date: 20180626
  Transmission Date: 20180711
  Serious: Yes (Hospitalization, Other)
  Sender: FDA-Public Use
  Company Number: US-WEST-WARD PHARMACEUTICALS CORP.-US-H14001-18-04330

PATIENT
  Sex: Male
  Weight: 61 kg

DRUGS (4)
  1. ENZALUTAMIDE [Suspect]
     Active Substance: ENZALUTAMIDE
     Indication: PROSTATE CANCER
     Route: 048
     Dates: start: 20160329, end: 20180402
  2. PREDNISONE. [Suspect]
     Active Substance: PREDNISONE
     Route: 048
  3. ABIRATERONE ACETATE. [Suspect]
     Active Substance: ABIRATERONE ACETATE
     Indication: PROSTATE CANCER
     Route: 048
     Dates: start: 20160329, end: 20180402
  4. PREDNISONE. [Suspect]
     Active Substance: PREDNISONE
     Indication: PROSTATE CANCER
     Route: 048
     Dates: start: 20160329, end: 20180402

REACTIONS (4)
  - Off label use [Recovered/Resolved]
  - Cardiac failure [Recovering/Resolving]
  - Pancreatitis acute [Unknown]
  - Disease progression [Unknown]

NARRATIVE: CASE EVENT DATE: 20160329
